FAERS Safety Report 5772800-7 (Version None)
Quarter: 2008Q2

REPORT INFORMATION
  Report Type: 
  Country: None (occurrence: None)
  Receive Date: 20080613
  Receipt Date: 20080606
  Transmission Date: 20081010
  Serious: Yes (Hospitalization, Other)
  Sender: FDA-Public Use
  Company Number: US-ABBOTT-08P-163-0455438-00

PATIENT
  Sex: Female
  Weight: 54.934 kg

DRUGS (3)
  1. HUMIRA [Suspect]
     Indication: RHEUMATOID ARTHRITIS
     Route: 058
     Dates: start: 20080411, end: 20080527
  2. HUMIRA [Suspect]
     Route: 058
     Dates: start: 20080527
  3. METHOTREXATE [Concomitant]
     Indication: RHEUMATOID ARTHRITIS
     Route: 048

REACTIONS (8)
  - DIARRHOEA [None]
  - DYSURIA [None]
  - GASTROENTERITIS VIRAL [None]
  - KIDNEY INFECTION [None]
  - PYREXIA [None]
  - RENAL PAIN [None]
  - TREMOR [None]
  - VOMITING [None]
